FAERS Safety Report 11813028 (Version 1)
Quarter: 2015Q4

REPORT INFORMATION
  Report Type: Spontaneous
  Country: US (occurrence: US)
  Receive Date: 20151209
  Receipt Date: 20151209
  Transmission Date: 20160305
  Serious: No
  Sender: FDA-Public Use
  Company Number: US-LUPIN PHARMACEUTICALS INC.-E2B_00004251

PATIENT
  Sex: Female

DRUGS (2)
  1. RESTASIS [Concomitant]
     Active Substance: CYCLOSPORINE
     Indication: PRODUCT USED FOR UNKNOWN INDICATION
     Route: 065
  2. GATIFLOXACIN. [Suspect]
     Active Substance: GATIFLOXACIN
     Indication: KERATOMILEUSIS
     Route: 047

REACTIONS (1)
  - Eye irritation [Unknown]
